FAERS Safety Report 18500276 (Version 1)
Quarter: 2020Q4

REPORT INFORMATION
  Report Type: Spontaneous
  Country: NL (occurrence: NL)
  Receive Date: 20201113
  Receipt Date: 20201113
  Transmission Date: 20210114
  Serious: Yes (Other)
  Sender: FDA-Public Use
  Company Number: NL-TEVA-2020-NL-1847719

PATIENT
  Sex: Female
  Weight: 68.6 kg

DRUGS (7)
  1. PANTOPRAZOL TABLET MSR 40MG / BRAND NAME NOT SPECIFIED [Concomitant]
     Active Substance: PANTOPRAZOLE
     Dosage: GASTRO-RESISTANT TABLET, 40 MG (MILLIGRAMS),THERAPY START DATE :ASKU, THERAPY END DATE :ASKU
  2. AMOXICILLINE/CLAVULAANZUUR TABLET 500/125MG / BRAND NAME NOT SPECIFIED [Concomitant]
     Active Substance: AMOXICILLIN\CLAVULANIC ACID
     Dosage: 625MG, THERAPY START DATE:ASKU, THERAPY END DATE :ASKU
  3. AZACITIDINE INJECTIE / BRAND NAME NOT SPECIFIED [Concomitant]
     Dosage: 1 MG/MG ,THERAPY START DATE:ASKU, THERAPY END DATE :ASKU
  4. OXYCODONE [Suspect]
     Active Substance: OXYCODONE
     Indication: PAIN
     Dosage: 40 MILLIGRAM DAILY; 2 X PER DAY 1 PIECE
     Dates: start: 202007, end: 20200720
  5. ALENDRONIN/CALCIUMCAR/COLECAL ORA (ALENCA D3 1000) / ALENCALCI D3 70MG [Concomitant]
     Dosage: TABLET + CHEWABLE TABLET,THERAPY START DATE :ASKU, THERAPY END DATE :ASKU
  6. ONDANSETRON SMELTTABLET 8MG / BRAND NAME NOT SPECIFIED [Concomitant]
     Dosage: MELTTABLET, 8 MG ,THERAPY START DATE:ASKU, THERAPY END DATE :ASKU
  7. OXYCODON TABLET   5MG / BRAND NAME NOT SPECIFIED [Concomitant]
     Dosage: 5 MG (MILLIGRAM),THERAPY START DATE:ASKU, THERAPY END DATE :ASKU

REACTIONS (1)
  - Hallucination [Recovered/Resolved]
